FAERS Safety Report 17907328 (Version 1)
Quarter: 2020Q2

REPORT INFORMATION
  Report Type: Spontaneous
  Country: US (occurrence: US)
  Receive Date: 20200617
  Receipt Date: 20200617
  Transmission Date: 20200714
  Serious: Yes (Disabling, Other)
  Sender: FDA-Public Use
  Company Number: None

PATIENT
  Age: 44 Year
  Sex: Female
  Weight: 75.15 kg

DRUGS (1)
  1. NP THYROID [Suspect]
     Active Substance: LEVOTHYROXINE\LIOTHYRONINE
     Route: 048
     Dates: end: 20200615

REACTIONS (10)
  - Pain [None]
  - Presyncope [None]
  - Temperature intolerance [None]
  - Chest pain [None]
  - Arrhythmia [None]
  - Fatigue [None]
  - Muscular weakness [None]
  - Heart rate increased [None]
  - Abdominal pain [None]
  - Headache [None]

NARRATIVE: CASE EVENT DATE: 20200617
